FAERS Safety Report 7139504-X (Version None)
Quarter: 2010Q4

REPORT INFORMATION
  Report Type: 
  Country: None (occurrence: None)
  Receive Date: 20101206
  Receipt Date: 20101124
  Transmission Date: 20110411
  Serious: Yes (Life-Threatening, Other)
  Sender: FDA-Public Use
  Company Number: GB-WATSON-2010-15439

PATIENT
  Age: 36 Year
  Sex: Female
  Weight: 80 kg

DRUGS (2)
  1. CITALOPRAM HYDROBROMIDE [Suspect]
     Indication: DEPRESSION
     Dosage: 40 MG, UNKNOWN
     Route: 048
     Dates: start: 20100907, end: 20101104
  2. ZAPAIN [Concomitant]
     Indication: ARTHRALGIA
     Dosage: 1 DF, QID
     Route: 048
     Dates: start: 20101005

REACTIONS (2)
  - OBSESSIVE THOUGHTS [None]
  - SUICIDAL IDEATION [None]
